FAERS Safety Report 26133535 (Version 1)
Quarter: 2025Q4

REPORT INFORMATION
  Report Type: Spontaneous
  Country: EU (occurrence: US)
  Receive Date: 20251209
  Receipt Date: 20251209
  Transmission Date: 20260117
  Serious: Yes (Other)
  Sender: AUROBINDO
  Company Number: EU-MLMSERVICE-20251111-PI707489-00052-2

PATIENT
  Age: 27 Year
  Sex: Female

DRUGS (10)
  1. CEFUROXIME [Suspect]
     Active Substance: CEFUROXIME
     Indication: Lymphocyte transformation test
     Dosage: UNK
     Route: 065
  2. CEFUROXIME [Suspect]
     Active Substance: CEFUROXIME
     Dosage: 10 ?G/?L
     Route: 065
  3. AMOXICILLIN [Suspect]
     Active Substance: AMOXICILLIN
     Indication: Antibiotic therapy
     Dosage: UNK
     Route: 065
  4. AMOXICILLIN\CLAVULANIC ACID [Suspect]
     Active Substance: AMOXICILLIN\CLAVULANIC ACID
     Indication: Tooth infection
     Dosage: UNK
     Route: 065
  5. PENICILLIN V [Suspect]
     Active Substance: PENICILLIN V
     Indication: Drug provocation test
     Dosage: UNK
     Route: 065
  6. PENICILLIN G BENZATHINE [Suspect]
     Active Substance: PENICILLIN G BENZATHINE
     Indication: Lymphocyte transformation test
     Dosage: UNK
     Route: 065
  7. PENICILLIN G BENZATHINE [Suspect]
     Active Substance: PENICILLIN G BENZATHINE
     Dosage: 10 ?G/?L
     Route: 065
  8. MEROPENEM [Concomitant]
     Active Substance: MEROPENEM
     Indication: Lymphocyte transformation test
     Dosage: UNK
     Route: 065
  9. PIPERACILLIN SODIUM\TAZOBACTAM SODIUM [Concomitant]
     Active Substance: PIPERACILLIN SODIUM\TAZOBACTAM SODIUM
     Indication: Lymphocyte transformation test
     Dosage: UNK
     Route: 065
  10. PENICILLIN G [Concomitant]
     Active Substance: PENICILLIN G
     Indication: Lymphocyte transformation test
     Dosage: UNK
     Route: 065

REACTIONS (1)
  - Acute generalised exanthematous pustulosis [Recovered/Resolved]
